FAERS Safety Report 5563130-7 (Version None)
Quarter: 2007Q4

REPORT INFORMATION
  Report Type: 
  Country: None (occurrence: None)
  Receive Date: 20071217
  Receipt Date: 20071206
  Transmission Date: 20080405
  Serious: Yes (Other)
  Sender: FDA-Public Use
  Company Number: B0489304A

PATIENT
  Age: 81 Year
  Sex: Male
  Weight: 74 kg

DRUGS (2)
  1. AVANDIA [Suspect]
     Route: 048
     Dates: start: 20060710, end: 20070701
  2. STRUCTUM [Concomitant]
     Dosage: 500MG TWICE PER DAY
     Route: 065
     Dates: start: 20060201, end: 20071201

REACTIONS (2)
  - BRAIN NATRIURETIC PEPTIDE INCREASED [None]
  - OEDEMA PERIPHERAL [None]
